FAERS Safety Report 7985822-2 (Version None)
Quarter: 2011Q4

REPORT INFORMATION
  Report Type: 
  Country: None (occurrence: None)
  Receive Date: 20111214
  Receipt Date: 20111130
  Transmission Date: 20120403
  Serious: Yes (Death, Hospitalization)
  Sender: FDA-Public Use
  Company Number: 2011MA017041

PATIENT
  Age: 65 Year
  Sex: Male
  Weight: 136.0791 kg

DRUGS (7)
  1. COZAAR [Concomitant]
  2. POTASSIUM [Concomitant]
  3. ASPIRIN [Concomitant]
  4. DIGOXIN [Suspect]
     Indication: ARRHYTHMIA SUPRAVENTRICULAR
     Dosage: 0.25 NG;QD;PO
     Route: 048
     Dates: start: 20060101, end: 20080101
  5. LOPID [Concomitant]
  6. LIPITOR [Concomitant]
  7. GLUCOPHAGE [Concomitant]

REACTIONS (11)
  - CARDIAC FAILURE CONGESTIVE [None]
  - PAIN [None]
  - MULTIPLE INJURIES [None]
  - CARDIOGENIC SHOCK [None]
  - ANHEDONIA [None]
  - ANXIETY [None]
  - ECONOMIC PROBLEM [None]
  - ATRIAL FIBRILLATION [None]
  - SEPTIC SHOCK [None]
  - EMOTIONAL DISORDER [None]
  - RESPIRATORY FAILURE [None]
